FAERS Safety Report 24854944 (Version 1)
Quarter: 2025Q1

REPORT INFORMATION
  Report Type: Spontaneous
  Country: US (occurrence: US)
  Receive Date: 20250117
  Receipt Date: 20250117
  Transmission Date: 20250409
  Serious: Yes (Other)
  Sender: CURRAX PHARMACEUTICALS
  Company Number: US-NALPROPION PHARMACEUTICALS INC.-2020-011516

PATIENT
  Age: 54 Year
  Sex: Female

DRUGS (1)
  1. CONTRAVE [Suspect]
     Active Substance: BUPROPION HYDROCHLORIDE\NALTREXONE HYDROCHLORIDE
     Indication: Weight control
     Route: 048
     Dates: start: 20201018, end: 20201024

REACTIONS (3)
  - Blood pressure increased [Not Recovered/Not Resolved]
  - Migraine [Not Recovered/Not Resolved]
  - Illness [Unknown]

NARRATIVE: CASE EVENT DATE: 20201001
